FAERS Safety Report 20479731 (Version 1)
Quarter: 2022Q1

REPORT INFORMATION
  Report Type: Spontaneous
  Country: US (occurrence: None)
  Receive Date: 20220215
  Receipt Date: 20220215
  Transmission Date: 20220423
  Serious: Yes (Other)
  Sender: FDA-Public Use
  Company Number: None

PATIENT
  Age: 60 Year
  Sex: Female
  Weight: 91.2 kg

DRUGS (2)
  1. CILGAVIMAB [Suspect]
     Active Substance: CILGAVIMAB
     Indication: COVID-19 prophylaxis
     Dosage: OTHER FREQUENCY : ONCE;?
     Route: 030
     Dates: start: 20220210, end: 20220210
  2. TIXAGEVIMAB [Suspect]
     Active Substance: TIXAGEVIMAB
     Indication: COVID-19 prophylaxis
     Dosage: OTHER FREQUENCY : ONCE;?
     Route: 030
     Dates: start: 20220210, end: 20220210

REACTIONS (8)
  - Cough [None]
  - Chest discomfort [None]
  - Dyspnoea exertional [None]
  - Cough [None]
  - Dysphonia [None]
  - Head discomfort [None]
  - Nasal congestion [None]
  - Post procedural complication [None]

NARRATIVE: CASE EVENT DATE: 20220210
